FAERS Safety Report 8083566-2 (Version None)
Quarter: 2012Q1

REPORT INFORMATION
  Report Type: 
  Country: None (occurrence: None)
  Receive Date: 20120127
  Receipt Date: 20110210
  Transmission Date: 20120608
  Serious: No
  Sender: FDA-Public Use
  Company Number: US-ABBOTT-11P-163-0698832-00

PATIENT
  Age: 49 Year
  Sex: Male

DRUGS (9)
  1. METFFORMIN HYDROCHLORIDE [Concomitant]
     Indication: DIABETES MELLITUS
  2. ANDROGEL [Concomitant]
     Indication: BLOOD TESTOSTERONE DECREASED
     Route: 061
  3. TEMAZEPAM [Concomitant]
     Indication: SLEEP DISORDER THERAPY
  4. HUMIRA [Suspect]
     Indication: PSORIATIC ARTHROPATHY
     Dates: start: 20090701
  5. UROCIT-K [Concomitant]
     Indication: NEPHROLITHIASIS
  6. SIMVASTATIN [Concomitant]
     Indication: BLOOD CHOLESTEROL INCREASED
  7. ALLOPURINOL [Concomitant]
     Indication: NEPHROLITHIASIS
  8. LOTREL [Concomitant]
     Indication: HYPERTENSION
     Dosage: 5MG/20MG DAILY
  9. ACTOS [Concomitant]
     Indication: BLOOD GLUCOSE INCREASED

REACTIONS (6)
  - INJECTION SITE NODULE [None]
  - BACK PAIN [None]
  - INJECTION SITE PAIN [None]
  - DEVICE MALFUNCTION [None]
  - INCORRECT DOSE ADMINISTERED BY DEVICE [None]
  - DRUG DOSE OMISSION [None]
